FAERS Safety Report 6157606-1 (Version None)
Quarter: 2009Q2

REPORT INFORMATION
  Report Type: 
  Country: None (occurrence: None)
  Receive Date: 20090414
  Receipt Date: 20090403
  Transmission Date: 20091009
  Serious: Yes (Hospitalization)
  Sender: FDA-Public Use
  Company Number: 231120K09USA

PATIENT
  Age: 42 Year
  Sex: Female
  Weight: 52 kg

DRUGS (4)
  1. REBIF [Suspect]
     Indication: MULTIPLE SCLEROSIS
     Dosage: 44 MCG, 3 IN 1 WEEKS, SUBCUTANEOUS
     Route: 058
     Dates: start: 20081114
  2. NORVASC [Concomitant]
  3. BACLOFEN [Concomitant]
  4. ZANAFLEX [Concomitant]

REACTIONS (7)
  - ABASIA [None]
  - BACK PAIN [None]
  - CONDITION AGGRAVATED [None]
  - INFECTION [None]
  - INTESTINAL FUNCTIONAL DISORDER [None]
  - MULTIPLE SCLEROSIS [None]
  - URINARY RETENTION [None]
